FAERS Safety Report 11061815 (Version 1)
Quarter: 2015Q2

REPORT INFORMATION
  Report Type: Spontaneous
  Country: US (occurrence: US)
  Receive Date: 20150424
  Receipt Date: 20150424
  Transmission Date: 20150821
  Serious: No
  Sender: FDA-Public Use
  Company Number: US-BIOGENIDEC-2015BI051841

PATIENT
  Age: 35 Year
  Sex: Female

DRUGS (11)
  1. IBUPROFEN. [Concomitant]
     Active Substance: IBUPROFEN
  2. TIZANIDINE HCI [Concomitant]
     Active Substance: TIZANIDINE HYDROCHLORIDE
  3. TECFIDERA [Suspect]
     Active Substance: DIMETHYL FUMARATE
     Indication: MULTIPLE SCLEROSIS
     Route: 048
     Dates: start: 20131231
  4. PREDNISONE. [Concomitant]
     Active Substance: PREDNISONE
  5. GABAPENTIN. [Concomitant]
     Active Substance: GABAPENTIN
  6. ESCITALOPRAM OXALATE. [Concomitant]
     Active Substance: ESCITALOPRAM OXALATE
  7. LOPERAMIDE HCI [Concomitant]
     Active Substance: LOPERAMIDE HYDROCHLORIDE
  8. DIGOXIN. [Concomitant]
     Active Substance: DIGOXIN
  9. TOVIAZ [Concomitant]
     Active Substance: FESOTERODINE FUMARATE
  10. ALPRAZOLAM. [Concomitant]
     Active Substance: ALPRAZOLAM
  11. FLUTICASONE PROPIONATE. [Concomitant]
     Active Substance: FLUTICASONE PROPIONATE

REACTIONS (1)
  - Cardiac disorder [Not Recovered/Not Resolved]
